FAERS Safety Report 8348714-5 (Version None)
Quarter: 2012Q2

REPORT INFORMATION
  Report Type: 
  Country: None (occurrence: None)
  Receive Date: 20120510
  Receipt Date: 20120507
  Transmission Date: 20120825
  Serious: No
  Sender: FDA-Public Use
  Company Number: US-PFIZER INC-2012111582

PATIENT
  Sex: Female
  Weight: 85.714 kg

DRUGS (4)
  1. NEXIUM [Concomitant]
     Indication: GASTRIC DISORDER
     Dosage: UNK
  2. PRISTIQ [Suspect]
     Indication: DEPRESSION
     Dosage: 50 MG, 1X/DAY
     Route: 048
     Dates: start: 20120201
  3. EFFEXOR [Suspect]
     Indication: DEPRESSION
     Dosage: UNK
  4. LISINOPRIL [Concomitant]
     Indication: HYPERTENSION
     Dosage: 20 MG

REACTIONS (1)
  - INSOMNIA [None]
